FAERS Safety Report 6110863-X (Version None)
Quarter: 2009Q1

REPORT INFORMATION
  Report Type: 
  Country: None (occurrence: None)
  Receive Date: 20090306
  Receipt Date: 20090220
  Transmission Date: 20090719
  Serious: Yes (Hospitalization, Other)
  Sender: FDA-Public Use
  Company Number: 2009SP004441

PATIENT
  Age: 88 Year
  Sex: Male

DRUGS (2)
  1. CLARITIN [Suspect]
     Indication: RHINORRHOEA
     Dosage: PO
     Route: 048
  2. BENADRYL [Suspect]
     Indication: NASOPHARYNGITIS

REACTIONS (3)
  - DRUG INEFFECTIVE [None]
  - GENERAL PHYSICAL HEALTH DETERIORATION [None]
  - MECHANICAL VENTILATION [None]
